FAERS Safety Report 16697628 (Version 1)
Quarter: 2019Q4

REPORT INFORMATION
  Report Type: Spontaneous
  Country: US (occurrence: US)
  Receive Date: 20190812
  Receipt Date: 20190812
  Transmission Date: 20200122
  Serious: Yes (Hospitalization)
  Sender: FDA-Public Use
  Company Number: None

PATIENT
  Age: 40 Year
  Sex: Male

DRUGS (4)
  1. TIZANIDINE, NEURONTIN, CYMBALTA,BACLOFEN, AMANTADINE [Concomitant]
  2. KLONOPIN, DULOXETINE, CLONAZEP, MELOXICAM, ACYCLOVIR [Concomitant]
  3. MODAFINIL, GABAPENTIN [Concomitant]
  4. DALFAMPRIDINE. [Suspect]
     Active Substance: DALFAMPRIDINE
     Indication: MULTIPLE SCLEROSIS
     Route: 048
     Dates: start: 20181026

REACTIONS (1)
  - Hospitalisation [None]

NARRATIVE: CASE EVENT DATE: 20190725
